FAERS Safety Report 8315323-3 (Version None)
Quarter: 2012Q2

REPORT INFORMATION
  Report Type: 
  Country: None (occurrence: None)
  Receive Date: 20120426
  Receipt Date: 20120418
  Transmission Date: 20120825
  Serious: Yes (Other)
  Sender: FDA-Public Use
  Company Number: US-ELI_LILLY_AND_COMPANY-US201203004288

PATIENT
  Sex: Female
  Weight: 112.93 kg

DRUGS (7)
  1. HUMULIN 70/30 [Suspect]
     Dosage: 40 U, BID
     Route: 058
     Dates: start: 20070920, end: 20120328
  2. LISINOPRIL [Concomitant]
     Dosage: UNK
  3. PRAVASTATIN [Concomitant]
     Dosage: UNK
  4. GLIPIZIDE [Concomitant]
     Dosage: UNK
     Dates: start: 20120330
  5. METFORMIN HCL [Concomitant]
     Dosage: UNK
  6. HUMULIN 70/30 [Suspect]
     Indication: TYPE 2 DIABETES MELLITUS
     Dosage: 40 U, BID
     Route: 058
     Dates: start: 20070920, end: 20120328
  7. HUMULIN 70/30 [Suspect]
     Dosage: UNK
     Dates: start: 20120405

REACTIONS (3)
  - BLOOD GLUCOSE INCREASED [None]
  - INTENTIONAL DRUG MISUSE [None]
  - HYPERSENSITIVITY [None]
